FAERS Safety Report 21297392 (Version 4)
Quarter: 2024Q3

REPORT INFORMATION
  Report Type: Report from Study
  Country: US (occurrence: US)
  Receive Date: 20220906
  Receipt Date: 20240702
  Transmission Date: 20241016
  Serious: Yes (Death, Hospitalization)
  Sender: INSMED
  Company Number: US-INSMED, INC.-2022-02418-US

PATIENT
  Sex: Male

DRUGS (1)
  1. ARIKAYCE [Suspect]
     Active Substance: AMIKACIN
     Indication: Mycobacterial infection
     Dosage: 590 MG, BIW ON MONDAY AND FRIDAY
     Route: 055
     Dates: start: 201901

REACTIONS (4)
  - Illness [Fatal]
  - Hospitalisation [Unknown]
  - Intensive care [Unknown]
  - Off label use [Unknown]
